FAERS Safety Report 4648269-2 (Version None)
Quarter: 2005Q2

REPORT INFORMATION
  Report Type: 
  Country: None (occurrence: None)
  Receive Date: 20050426
  Receipt Date: 20050419
  Transmission Date: 20051028
  Serious: Yes (Other)
  Sender: FDA-Public Use
  Company Number: 2005-04-1396

PATIENT
  Sex: Female

DRUGS (1)
  1. CLARITIN-D [Suspect]
     Dosage: ORAL
     Route: 048

REACTIONS (2)
  - HALLUCINATION [None]
  - INSOMNIA [None]
